FAERS Safety Report 18600381 (Version 1)
Quarter: 2020Q4

REPORT INFORMATION
  Report Type: Spontaneous
  Country: JP (occurrence: JP)
  Receive Date: 20201210
  Receipt Date: 20201210
  Transmission Date: 20210114
  Serious: Yes (Hospitalization, Other)
  Sender: FDA-Public Use
  Company Number: JP-BAYER-2020-263118

PATIENT
  Age: 14 Year
  Sex: Male

DRUGS (3)
  1. BETAFERON [Suspect]
     Active Substance: INTERFERON BETA-1B
     Indication: MULTIPLE SCLEROSIS
     Dosage: PROBABLY NORMAL DOSE (8.0 MILLION IU)
     Dates: start: 2020, end: 2020
  2. BETAFERON [Suspect]
     Active Substance: INTERFERON BETA-1B
     Indication: MULTIPLE SCLEROSIS
     Dosage: 7.2 MILLION IU
     Dates: start: 20201007, end: 2020
  3. BETAFERON [Suspect]
     Active Substance: INTERFERON BETA-1B
     Indication: MULTIPLE SCLEROSIS
     Dosage: 7.2 MILLION IU
     Dates: start: 2020

REACTIONS (7)
  - Multiple sclerosis relapse [None]
  - Multiple sclerosis relapse [None]
  - Dysarthria [None]
  - Off label use [None]
  - Influenza like illness [None]
  - Neurological symptom [None]
  - Hospitalisation [None]

NARRATIVE: CASE EVENT DATE: 2020
